FAERS Safety Report 6140066-4 (Version None)
Quarter: 2009Q2

REPORT INFORMATION
  Report Type: 
  Country: None (occurrence: None)
  Receive Date: 20090401
  Receipt Date: 20090330
  Transmission Date: 20091009
  Serious: Yes (Death)
  Sender: FDA-Public Use
  Company Number: PHHY2009BR11971

PATIENT
  Sex: Male

DRUGS (2)
  1. EXELON [Suspect]
     Dosage: 18 MG/10 CM2
     Route: 062
  2. TRILEPTAL [Suspect]
     Route: 048

REACTIONS (1)
  - DEATH [None]
